FAERS Safety Report 12798135 (Version 1)
Quarter: 2016Q3

REPORT INFORMATION
  Report Type: Spontaneous
  Country: US (occurrence: US)
  Receive Date: 20160930
  Receipt Date: 20160930
  Transmission Date: 20161109
  Serious: Yes (Hospitalization)
  Sender: FDA-Public Use
  Company Number: None

PATIENT
  Age: 81 Year
  Sex: Male
  Weight: 93.3 kg

DRUGS (3)
  1. BENDAMUSTINE HYDROCHLORIDE. [Suspect]
     Active Substance: BENDAMUSTINE HYDROCHLORIDE
     Dates: end: 20160920
  2. RITUXIMAB (MOABC2B8 ANTI CD20, CHIMERIC) [Suspect]
     Active Substance: RITUXIMAB
     Dates: end: 20160920
  3. VELCADE [Suspect]
     Active Substance: BORTEZOMIB
     Dates: end: 20160927

REACTIONS (3)
  - Bacterial test positive [None]
  - White blood cell count increased [None]
  - Pyrexia [None]

NARRATIVE: CASE EVENT DATE: 20160927
